FAERS Safety Report 5184365-1 (Version None)
Quarter: 2006Q4

REPORT INFORMATION
  Report Type: 
  Country: None (occurrence: None)
  Receive Date: 20061220
  Receipt Date: 20060330
  Transmission Date: 20070319
  Serious: No
  Sender: FDA-Public Use
  Company Number: US-GLAXOSMITHKLINE-A0600064A

PATIENT
  Age: 5 Year

DRUGS (2)
  1. NICODERM CQ [Suspect]
  2. NICORETTE [Suspect]

REACTIONS (5)
  - DRUG WITHDRAWAL SYNDROME [None]
  - INTENTIONAL DRUG MISUSE [None]
  - NICOTINE DEPENDENCE [None]
  - TOOTH DISORDER [None]
  - TREMOR [None]
